FAERS Safety Report 18661381 (Version 2)
Quarter: 2021Q1

REPORT INFORMATION
  Report Type: Report from Study
  Country: US (occurrence: US)
  Receive Date: 20201224
  Receipt Date: 20210210
  Transmission Date: 20210419
  Serious: Yes (Hospitalization, Other)
  Sender: FDA-Public Use
  Company Number: NVSC2020US335635

PATIENT
  Age: 47 Year
  Sex: Female

DRUGS (2)
  1. COSENTYX [Suspect]
     Active Substance: SECUKINUMAB
     Indication: PSORIASIS
     Dosage: 300 MG (ONCE A WEEK FOR 5 WEEKS AND THEN Q 4)
     Route: 058
     Dates: start: 202008
  2. COSENTYX [Suspect]
     Active Substance: SECUKINUMAB
     Dosage: 300 MG
     Route: 058
     Dates: start: 20201213

REACTIONS (12)
  - Blood iron decreased [Unknown]
  - Heart rate increased [Unknown]
  - COVID-19 [Unknown]
  - Pruritus [Unknown]
  - Skin exfoliation [Unknown]
  - Dyspnoea [Unknown]
  - Decreased immune responsiveness [Unknown]
  - Breast mass [Unknown]
  - Illness [Unknown]
  - Psoriasis [Unknown]
  - Pneumonia [Unknown]
  - Influenza [Unknown]

NARRATIVE: CASE EVENT DATE: 20201003
